FAERS Safety Report 18041083 (Version 1)
Quarter: 2020Q3

REPORT INFORMATION
  Report Type: Spontaneous
  Country: GB (occurrence: GB)
  Receive Date: 20200718
  Receipt Date: 20200718
  Transmission Date: 20201103
  Serious: Yes (Other)
  Sender: FDA-Public Use
  Company Number: NVSC2020GB198811

PATIENT
  Age: 23 Year
  Sex: Male

DRUGS (1)
  1. AZITHROMYCIN ANHYDROUS. [Suspect]
     Active Substance: AZITHROMYCIN ANHYDROUS
     Indication: GONORRHOEA
     Dosage: 4 DF, ONCE/SINGLE(AS A SINGLE DOSE)
     Route: 065
     Dates: start: 2018, end: 2018

REACTIONS (7)
  - Cystitis noninfective [Not Recovered/Not Resolved]
  - Chromaturia [Not Recovered/Not Resolved]
  - Cystitis interstitial [Not Recovered/Not Resolved]
  - Urine abnormality [Not Recovered/Not Resolved]
  - Bladder pain [Not Recovered/Not Resolved]
  - Renal pain [Not Recovered/Not Resolved]
  - Abdominal pain upper [Not Recovered/Not Resolved]
